FAERS Safety Report 21029692 (Version 2)
Quarter: 2022Q3

REPORT INFORMATION
  Report Type: Report from Study
  Country: US (occurrence: US)
  Receive Date: 20220630
  Receipt Date: 20220726
  Transmission Date: 20221027
  Serious: Yes (Hospitalization, Other)
  Sender: FDA-Public Use
  Company Number: US-SEATTLE GENETICS-2022SGN06005

PATIENT
  Age: 41 Year
  Sex: Female

DRUGS (2)
  1. TUCATINIB [Suspect]
     Active Substance: TUCATINIB
     Indication: Breast cancer female
     Dosage: UNK
     Route: 065
  2. TUCATINIB [Suspect]
     Active Substance: TUCATINIB
     Dosage: TAKE 2 TABLETS EVERY 12 HOURS (BID)
     Route: 048

REACTIONS (8)
  - Illness [Unknown]
  - Seizure [Unknown]
  - Dizziness [Unknown]
  - Photophobia [Unknown]
  - Hyperacusis [Unknown]
  - Gait disturbance [Unknown]
  - Speech disorder [Unknown]
  - Movement disorder [Unknown]

NARRATIVE: CASE EVENT DATE: 20220601
